FAERS Safety Report 8268385-6 (Version None)
Quarter: 2012Q1

REPORT INFORMATION
  Report Type: 
  Country: None (occurrence: None)
  Receive Date: 20120327
  Receipt Date: 20100304
  Transmission Date: 20120608
  Serious: Yes (Hospitalization, Other)
  Sender: FDA-Public Use
  Company Number: PHHY2010US02464

PATIENT
  Sex: Female

DRUGS (4)
  1. STEROIDS NOS (NO INGREDIENTS/SUBSTANCES) [Concomitant]
  2. GLEEVEC [Suspect]
     Indication: GASTROINTESTINAL STROMAL TUMOUR
     Dosage: 200 MG DAILY (HALF TABLET, ORAL; 400 MG DAILY (ONE PILL DAILY), ORAL; 200 MG DAILY (HALF PILL), ORAL
     Route: 048
     Dates: start: 20091217
  3. GLEEVEC [Suspect]
     Indication: GASTROINTESTINAL STROMAL TUMOUR
     Dosage: 200 MG DAILY (HALF TABLET, ORAL; 400 MG DAILY (ONE PILL DAILY), ORAL; 200 MG DAILY (HALF PILL), ORAL
     Route: 048
     Dates: start: 20091112, end: 20091224
  4. GLEEVEC [Suspect]
     Indication: GASTROINTESTINAL STROMAL TUMOUR
     Dosage: 200 MG DAILY (HALF TABLET, ORAL; 400 MG DAILY (ONE PILL DAILY), ORAL; 200 MG DAILY (HALF PILL), ORAL
     Route: 048
     Dates: start: 20091201

REACTIONS (10)
  - ANGIOEDEMA [None]
  - RASH MACULO-PAPULAR [None]
  - OEDEMA PERIPHERAL [None]
  - PRURITUS [None]
  - RASH GENERALISED [None]
  - SPEECH DISORDER [None]
  - SWELLING FACE [None]
  - ERYTHEMA [None]
  - SCIATICA [None]
  - INFLAMMATION [None]
